FAERS Safety Report 5338302-7 (Version None)
Quarter: 2007Q2

REPORT INFORMATION
  Report Type: 
  Country: None (occurrence: None)
  Receive Date: 20070327
  Receipt Date: 20070223
  Transmission Date: 20071010
  Serious: Yes (Hospitalization)
  Sender: FDA-Public Use
  Company Number: 237205

PATIENT
  Age: 64 Year
  Sex: Female

DRUGS (2)
  1. AVASTIN [Suspect]
     Indication: GLIOBLASTOMA MULTIFORME
     Dosage: 15 MG/KG, Q3W, INTRAVENOUS
     Route: 042
  2. IRINOTECAN HCL [Concomitant]

REACTIONS (1)
  - INTESTINAL PERFORATION [None]
